FAERS Safety Report 8460591 (Version 2)
Quarter: 2013Q2

REPORT INFORMATION
  Report Type: Spontaneous
  Country: FR (occurrence: FR)
  Receive Date: 20120315
  Receipt Date: 20130619
  Transmission Date: 20140414
  Serious: Yes (Other)
  Sender: FDA-Public Use
  Company Number: FR-BRISTOL-MYERS SQUIBB COMPANY-16440356

PATIENT
  Age: 65 Year
  Sex: Female

DRUGS (6)
  1. REYATAZ CAPS 150 MG [Suspect]
     Indication: HIV INFECTION
     Route: 048
     Dates: start: 20060228, end: 20120216
  2. EMTRIVA [Concomitant]
     Dates: start: 20060228
  3. NORVIR [Concomitant]
     Dates: start: 20060228, end: 20120216
  4. CRESTOR [Concomitant]
     Dates: start: 20080903
  5. KIVEXA [Concomitant]
     Dates: start: 20060228
  6. VIREAD [Concomitant]
     Dates: end: 20071010

REACTIONS (3)
  - Nephrolithiasis [Recovered/Resolved]
  - Renal failure [Recovered/Resolved]
  - Low density lipoprotein increased [Recovered/Resolved]
